FAERS Safety Report 24444948 (Version 1)
Quarter: 2024Q4

REPORT INFORMATION
  Report Type: Spontaneous
  Country: US (occurrence: US)
  Receive Date: 20241016
  Receipt Date: 20241016
  Transmission Date: 20250114
  Serious: No
  Sender: SANDOZ
  Company Number: US-002147023-NVSC2024US022446

PATIENT
  Sex: Female

DRUGS (2)
  1. COMBIPATCH [Suspect]
     Active Substance: ESTRADIOL\NORETHINDRONE ACETATE
     Indication: Menopause
     Dosage: UNK (0.05/0.14 MG)
     Route: 062
  2. ZINC [Suspect]
     Active Substance: ZINC
     Indication: Blood zinc decreased
     Dosage: UNK
     Route: 065

REACTIONS (1)
  - Intermenstrual bleeding [Recovered/Resolved]
